FAERS Safety Report 4774111-5 (Version None)
Quarter: 2005Q3

REPORT INFORMATION
  Report Type: 
  Country: None (occurrence: None)
  Receive Date: 20050914
  Receipt Date: 20050401
  Transmission Date: 20060218
  Serious: Yes (Other)
  Sender: FDA-Public Use
  Company Number: 163-20785-05040168

PATIENT

DRUGS (1)
  1. THALOMID [Suspect]
     Indication: CHRONIC LYMPHOCYTIC LEUKAEMIA
     Dosage: 200MG DAYS 1-14 INCREASING BY 200MG Q2WKS UP TO 1000MG, DAILY, ORAL
     Route: 048
     Dates: start: 20020824

REACTIONS (2)
  - FATIGUE [None]
  - MYALGIA [None]
